FAERS Safety Report 19976469 (Version 1)
Quarter: 2021Q4

REPORT INFORMATION
  Report Type: Spontaneous
  Country: US (occurrence: US)
  Receive Date: 20211020
  Receipt Date: 20211020
  Transmission Date: 20220303
  Serious: No
  Sender: FDA-Public Use
  Company Number: US-ALLERGAN-2122915US

PATIENT
  Sex: Male
  Weight: 77.1 kg

DRUGS (5)
  1. LINZESS [Suspect]
     Active Substance: LINACLOTIDE
     Indication: Irritable bowel syndrome
     Dosage: 72 ?G
     Dates: start: 202103, end: 202105
  2. CARVEDILOL [Concomitant]
     Active Substance: CARVEDILOL
     Indication: Blood pressure measurement
     Dosage: 12.5 MG, BID
     Dates: start: 2011
  3. ZETIA [Concomitant]
     Active Substance: EZETIMIBE
     Dosage: 10 MG, QD
     Dates: start: 2011
  4. ROSUVASTATIN [Concomitant]
     Active Substance: ROSUVASTATIN
     Dosage: 20 MG, QD
     Dates: start: 2011
  5. GEMFIBROZIL [Concomitant]
     Active Substance: GEMFIBROZIL
     Dosage: 600 MG, QD
     Dates: start: 2020

REACTIONS (2)
  - Incorrect dose administered [Unknown]
  - Product administration interrupted [Unknown]
